FAERS Safety Report 7628444-5 (Version None)
Quarter: 2011Q3

REPORT INFORMATION
  Report Type: 
  Country: None (occurrence: None)
  Receive Date: 20110722
  Receipt Date: 20110711
  Transmission Date: 20111222
  Serious: Yes (Hospitalization)
  Sender: FDA-Public Use
  Company Number: FR-JNJFOC-20110400684

PATIENT
  Sex: Male
  Weight: 75 kg

DRUGS (21)
  1. PREDNISONE [Suspect]
     Route: 048
     Dates: start: 20110417, end: 20110421
  2. OXYCONTIN [Concomitant]
     Indication: MUSCULOSKELETAL PAIN
     Route: 048
     Dates: start: 20110405
  3. ABIRATERONE [Suspect]
     Route: 048
     Dates: end: 20110404
  4. PREDNISONE [Suspect]
     Route: 048
     Dates: start: 20110323
  5. ATARAX [Concomitant]
     Indication: ANXIETY
     Route: 042
     Dates: start: 20110401, end: 20110405
  6. PREDNISONE [Suspect]
     Indication: PROSTATE CANCER
     Route: 048
     Dates: start: 20110427, end: 20110629
  7. PRAVASTATIN [Concomitant]
     Indication: HYPERCHOLESTEROLAEMIA
     Route: 048
     Dates: start: 20080811
  8. PLAVIX [Concomitant]
     Indication: CEREBROVASCULAR ACCIDENT
     Route: 048
     Dates: start: 20060801, end: 20110330
  9. LYRICA [Concomitant]
     Indication: NEURALGIA
     Route: 048
  10. SOLU-MEDROL [Concomitant]
     Indication: PRODUCT USED FOR UNKNOWN INDICATION
     Route: 042
     Dates: start: 20110331, end: 20110404
  11. ABIRATERONE [Suspect]
     Indication: PROSTATE CANCER
     Route: 048
     Dates: start: 20110408
  12. PREDNISONE [Suspect]
     Route: 048
     Dates: start: 20110422, end: 20110426
  13. NEXIUM [Concomitant]
     Indication: GASTROINTESTINAL DISORDER THERAPY
     Route: 048
     Dates: start: 20090607, end: 20110629
  14. PLAVIX [Concomitant]
     Route: 048
     Dates: start: 20110408
  15. OXYCODONE HCL [Concomitant]
     Indication: MUSCULOSKELETAL PAIN
     Route: 048
     Dates: start: 20110405
  16. PREDNISONE [Suspect]
     Route: 048
     Dates: start: 20110412, end: 20110416
  17. STABLON [Concomitant]
     Indication: DEPRESSION
     Route: 048
     Dates: start: 20020101
  18. LOVENOX [Concomitant]
     Indication: TRANSIENT ISCHAEMIC ATTACK
     Route: 058
     Dates: start: 20110331, end: 20110407
  19. PREDNISONE [Suspect]
     Route: 048
     Dates: start: 20110407, end: 20110410
  20. ALLOPURINOL [Concomitant]
     Indication: GOUT
     Route: 048
     Dates: start: 19880101
  21. ZOLADEX [Concomitant]
     Indication: PROSTATE CANCER
     Route: 058
     Dates: start: 20070725

REACTIONS (12)
  - HYPONATRAEMIA [None]
  - PAIN IN EXTREMITY [None]
  - INFECTION [None]
  - ABDOMINAL PAIN [None]
  - CONSTIPATION [None]
  - BONE PAIN [None]
  - OEDEMA PERIPHERAL [None]
  - DYSPNOEA [None]
  - WEIGHT INCREASED [None]
  - PYREXIA [None]
  - INAPPROPRIATE SCHEDULE OF DRUG ADMINISTRATION [None]
  - ASTHENIA [None]
